FAERS Safety Report 8249116-2 (Version None)
Quarter: 2012Q2

REPORT INFORMATION
  Report Type: 
  Country: None (occurrence: None)
  Receive Date: 20120402
  Receipt Date: 20120327
  Transmission Date: 20120825
  Serious: No
  Sender: FDA-Public Use
  Company Number: US-PFIZER INC-2012033628

PATIENT
  Sex: Female
  Weight: 98.413 kg

DRUGS (6)
  1. IMITREX [Concomitant]
     Indication: MIGRAINE
     Dosage: UNK
  2. VERAPAMIL [Concomitant]
     Dosage: UNK
  3. NEURONTIN [Suspect]
     Indication: PAIN
     Dosage: UNK, 1X/DAY
     Route: 048
     Dates: start: 20100601, end: 20111001
  4. LYRICA [Suspect]
     Indication: PAIN
     Dosage: 150 MG, 3X/DAY
     Route: 048
     Dates: start: 20111001
  5. LYRICA [Suspect]
     Dosage: 75 MG, UNK
  6. LYRICA [Suspect]
     Dosage: 75 MG, UNK

REACTIONS (3)
  - WEIGHT INCREASED [None]
  - STRESS [None]
  - BACK PAIN [None]
